FAERS Safety Report 15650068 (Version 5)
Quarter: 2024Q2

REPORT INFORMATION
  Report Type: Report from Study
  Country: FR (occurrence: FR)
  Receive Date: 20181123
  Receipt Date: 20240613
  Transmission Date: 20240716
  Serious: Yes (Hospitalization)
  Sender: FDA-Public Use
  Company Number: FR-IPSEN GROUP, RESEARCH AND DEVELOPMENT-2018-07948

PATIENT
  Age: 13 Year
  Sex: Male
  Weight: 30 kg

DRUGS (14)
  1. INCRELEX [Suspect]
     Active Substance: MECASERMIN
     Indication: Severe primary insulin like growth factor-1 deficiency
     Dosage: 0.04 MG/KG IS EQUAL TO 40 MICROGRAM/KG.
     Route: 058
     Dates: start: 20141018, end: 201502
  2. INCRELEX [Suspect]
     Active Substance: MECASERMIN
     Dosage: 0.08 MG/KG IS EQUAL TO 80 MICROGRAM/KG.
     Route: 058
     Dates: start: 201502, end: 20151229
  3. INCRELEX [Suspect]
     Active Substance: MECASERMIN
     Dosage: 0.12 MG/KG IS EQUAL TO 120 MICROGRAM/KG.
     Route: 058
     Dates: start: 20151229
  4. INCRELEX [Suspect]
     Active Substance: MECASERMIN
     Dosage: BID
     Route: 058
     Dates: start: 20170603
  5. INCRELEX [Suspect]
     Active Substance: MECASERMIN
     Dosage: BID
     Route: 058
     Dates: start: 20170829
  6. INCRELEX [Suspect]
     Active Substance: MECASERMIN
     Dosage: BID
     Route: 058
     Dates: start: 20180227
  7. INCRELEX [Suspect]
     Active Substance: MECASERMIN
     Dosage: BID
     Route: 058
     Dates: start: 20200602
  8. INCRELEX [Suspect]
     Active Substance: MECASERMIN
     Dosage: BID
     Route: 058
     Dates: start: 20200915
  9. GLUCAGON [Concomitant]
     Active Substance: GLUCAGON\GLUCAGON HYDROCHLORIDE\WATER
  10. FOLIC ACID [Concomitant]
     Active Substance: FOLIC ACID
     Indication: Anaemia
     Route: 048
  11. FLUTICASONE FUROATE [Concomitant]
     Active Substance: FLUTICASONE FUROATE
     Indication: Hypersensitivity
     Dosage: 2 SPRAY/DAY; LOCAL
     Route: 061
  12. EBASTINE [Concomitant]
     Active Substance: EBASTINE
     Indication: Hypersensitivity
     Route: 048
  13. ZINC GLUCONATE [Concomitant]
     Active Substance: ZINC GLUCONATE
     Indication: Acne
     Route: 048
  14. FERROUS SULFATE [Concomitant]
     Active Substance: FERROUS SULFATE
     Indication: Anaemia
     Route: 048

REACTIONS (7)
  - Hypoglycaemia [Recovered/Resolved]
  - Sickle cell anaemia with crisis [Recovered/Resolved]
  - Sickle cell anaemia with crisis [Recovered/Resolved]
  - Hypotonia [Recovered/Resolved]
  - Abdominal pain [Recovered/Resolved]
  - Pallor [Recovered/Resolved]
  - Constipation [Recovered/Resolved]

NARRATIVE: CASE EVENT DATE: 20141201
